FAERS Safety Report 10469204 (Version 1)
Quarter: 2014Q3

REPORT INFORMATION
  Report Type: Spontaneous
  Country: US (occurrence: None)
  Receive Date: 20140829
  Receipt Date: 20140829
  Transmission Date: 20150326
  Serious: Yes (Disabling, Other)
  Sender: FDA-Public Use
  Company Number: PHEH2013US023457

PATIENT
  Age: 62 Year
  Sex: Male

DRUGS (8)
  1. TRAMADOL (TRAMADOL) [Concomitant]
     Active Substance: TRAMADOL
  2. PRILOSEC (OMEPRAZOLE) [Concomitant]
     Active Substance: OMEPRAZOLE MAGNESIUM
  3. SYMBICORT [Concomitant]
     Active Substance: BUDESONIDE\FORMOTEROL FUMARATE DIHYDRATE
  4. TYLENOL [Concomitant]
     Active Substance: ACETAMINOPHEN
  5. ALPRAZOLAM (ALPRAZOLAM) [Concomitant]
     Active Substance: ALPRAZOLAM
  6. EXFORGE [Suspect]
     Active Substance: AMLODIPINE BESYLATE\VALSARTAN
     Dosage: 160 MG VAL, 5 MG AMLO, QD
     Dates: start: 2009
  7. GABAPENTIN (GABAPENTIN) [Concomitant]
     Active Substance: GABAPENTIN
  8. ZETONNA (CICLESONIDE) [Concomitant]

REACTIONS (1)
  - Hypertension [None]
